FAERS Safety Report 4349500-3 (Version None)
Quarter: 2004Q1

REPORT INFORMATION
  Report Type: 
  Country: None (occurrence: None)
  Receive Date: 20040325
  Receipt Date: 20031120
  Transmission Date: 20041129
  Serious: No
  Sender: FDA-Public Use
  Company Number: USA031050993

PATIENT
  Age: 80 Year
  Sex: Female
  Weight: 68 kg

DRUGS (8)
  1. FORTEO [Suspect]
     Indication: OSTEOPOROSIS
     Dosage: 20 UG/DAY
     Dates: start: 20031027
  2. DIGOXIN [Concomitant]
  3. CALTRATE + D [Concomitant]
  4. COUMADIN [Concomitant]
  5. LIPITOR [Concomitant]
  6. PREVACID [Concomitant]
  7. VITAMIN D [Concomitant]
  8. CITRACAL (CALCIUM CITRATE) [Concomitant]

REACTIONS (12)
  - BONE PAIN [None]
  - CARDIAC FLUTTER [None]
  - DIZZINESS [None]
  - HEADACHE [None]
  - HEART RATE INCREASED [None]
  - HYPERHIDROSIS [None]
  - ILL-DEFINED DISORDER [None]
  - INSOMNIA [None]
  - LETHARGY [None]
  - MYALGIA [None]
  - SCAB [None]
  - TREMOR [None]
